FAERS Safety Report 16674290 (Version 2)
Quarter: 2019Q3

REPORT INFORMATION
  Report Type: Spontaneous
  Country: IN (occurrence: IN)
  Receive Date: 20190806
  Receipt Date: 20190902
  Transmission Date: 20191004
  Serious: Yes (Other)
  Sender: FDA-Public Use
  Company Number: IN-PFIZER INC-2017420431

PATIENT
  Age: 60 Year
  Sex: Female
  Weight: 42 kg

DRUGS (3)
  1. PALBACE [Suspect]
     Active Substance: PALBOCICLIB
     Dosage: 100 MG, 1X/DAY
     Route: 048
     Dates: start: 20170923
  2. FASLODEX [Concomitant]
     Active Substance: FULVESTRANT
     Dosage: UNK
  3. PALBACE [Suspect]
     Active Substance: PALBOCICLIB
     Indication: BREAST CANCER METASTATIC
     Dosage: 125 MG, 1X/DAY
     Route: 048
     Dates: start: 20170923, end: 20180621

REACTIONS (7)
  - Fall [Unknown]
  - Product use in unapproved indication [Unknown]
  - Neutropenia [Unknown]
  - Neoplasm progression [Unknown]
  - Peripheral swelling [Unknown]
  - Thrombosis [Unknown]
  - Off label use [Unknown]
